FAERS Safety Report 17618936 (Version 7)
Quarter: 2020Q3

REPORT INFORMATION
  Report Type: Spontaneous
  Country: US (occurrence: US)
  Receive Date: 20200402
  Receipt Date: 20200921
  Transmission Date: 20201102
  Serious: Yes (Hospitalization, Other)
  Sender: FDA-Public Use
  Company Number: US-LEXICON PHARMACEUTICALS, INC-20-1606-00151

PATIENT
  Age: 73 Year
  Sex: Male

DRUGS (5)
  1. ELIQUIS [Concomitant]
     Active Substance: APIXABAN
  2. LANREOTIDE [Concomitant]
     Active Substance: LANREOTIDE
     Indication: PRODUCT USED FOR UNKNOWN INDICATION
     Route: 065
  3. KEPPRA [Concomitant]
     Active Substance: LEVETIRACETAM
  4. XERMELO [Suspect]
     Active Substance: TELOTRISTAT ETHYL
     Indication: SMALL INTESTINE CARCINOMA
  5. XERMELO [Suspect]
     Active Substance: TELOTRISTAT ETHYL
     Indication: CARCINOID TUMOUR
     Dates: start: 20200207

REACTIONS (10)
  - Product dose omission issue [Not Recovered/Not Resolved]
  - Brain operation [Not Recovered/Not Resolved]
  - Spinal fracture [Unknown]
  - Asthenia [Unknown]
  - Somnolence [Unknown]
  - Pneumonia [Unknown]
  - Radiotherapy [Unknown]
  - Flatulence [Not Recovered/Not Resolved]
  - Limb injury [Not Recovered/Not Resolved]
  - Disease progression [Unknown]

NARRATIVE: CASE EVENT DATE: 2020
